FAERS Safety Report 7525445-2 (Version None)
Quarter: 2011Q2

REPORT INFORMATION
  Report Type: 
  Country: None (occurrence: None)
  Receive Date: 20110606
  Receipt Date: 20110524
  Transmission Date: 20111010
  Serious: Yes (Death, Hospitalization)
  Sender: FDA-Public Use
  Company Number: US-ACTELION-A-US2011-48818

PATIENT

DRUGS (2)
  1. FLOLAN [Concomitant]
  2. TRACLEER [Suspect]
     Indication: PULMONARY ARTERIAL HYPERTENSION
     Dosage: UNK
     Route: 048
     Dates: end: 20100827

REACTIONS (11)
  - PULSELESS ELECTRICAL ACTIVITY [None]
  - CARDIAC FAILURE CONGESTIVE [None]
  - ARRHYTHMIA [None]
  - FLUID OVERLOAD [None]
  - PULMONARY ARTERIAL HYPERTENSION [None]
  - CARDIAC ARREST [None]
  - ACUTE MYOCARDIAL INFARCTION [None]
  - HYPERKALAEMIA [None]
  - RIGHT VENTRICULAR FAILURE [None]
  - DIARRHOEA [None]
  - DISEASE PROGRESSION [None]
